FAERS Safety Report 21116853 (Version 2)
Quarter: 2022Q3

REPORT INFORMATION
  Report Type: Spontaneous
  Country: US (occurrence: US)
  Receive Date: 20220722
  Receipt Date: 20220730
  Transmission Date: 20221027
  Serious: No
  Sender: FDA-Public Use
  Company Number: US-TEVA-2022-US-2054169

PATIENT
  Sex: Female

DRUGS (3)
  1. DIFLUNISAL [Suspect]
     Active Substance: DIFLUNISAL
     Indication: Osteoarthritis
     Route: 065
  2. DIFLUNISAL [Suspect]
     Active Substance: DIFLUNISAL
     Indication: Rheumatoid arthritis
  3. HYDROCORTISONE [Concomitant]
     Active Substance: HYDROCORTISONE
     Indication: Product used for unknown indication
     Route: 065

REACTIONS (7)
  - Joint swelling [Unknown]
  - Joint stiffness [Unknown]
  - Arthralgia [Unknown]
  - Gait disturbance [Unknown]
  - Therapeutic product effect variable [Unknown]
  - Gastritis [Unknown]
  - Dysstasia [Unknown]
